FAERS Safety Report 4331800-4 (Version None)
Quarter: 2004Q2

REPORT INFORMATION
  Report Type: 
  Country: None (occurrence: None)
  Receive Date: 20040405
  Receipt Date: 20030829
  Transmission Date: 20050107
  Serious: No
  Sender: FDA-Public Use
  Company Number: US-GLAXOSMITHKLINE-A0424144A

PATIENT
  Age: 59 Year
  Sex: Female

DRUGS (9)
  1. FLOVENT [Suspect]
     Route: 055
  2. ADVAIR DISKUS 100/50 [Suspect]
     Route: 055
  3. OXYGEN [Concomitant]
  4. PREDNISONE [Concomitant]
  5. ACTOS [Concomitant]
  6. FOSAMAX [Concomitant]
  7. PAXIL [Concomitant]
  8. ZYPREXA [Concomitant]
  9. GUAIFEN [Concomitant]

REACTIONS (5)
  - APHONIA [None]
  - COUGH [None]
  - DRUG INEFFECTIVE [None]
  - DYSPNOEA [None]
  - HOARSENESS [None]
